FAERS Safety Report 16816510 (Version 1)
Quarter: 2019Q3

REPORT INFORMATION
  Report Type: Spontaneous
  Country: US (occurrence: US)
  Receive Date: 20190917
  Receipt Date: 20190917
  Transmission Date: 20191005
  Serious: No
  Sender: FDA-Public Use
  Company Number: US-ALLERGAN-1930433US

PATIENT
  Age: 8 Decade
  Sex: Male
  Weight: 73.47 kg

DRUGS (1)
  1. LINZESS [Suspect]
     Active Substance: LINACLOTIDE
     Indication: CONSTIPATION
     Dosage: 145 ?G, SINGLE
     Route: 048
     Dates: start: 2019, end: 2019

REACTIONS (4)
  - Dyspepsia [Recovered/Resolved]
  - Nausea [Recovered/Resolved]
  - Abdominal distension [Recovered/Resolved]
  - Retching [Recovered/Resolved]

NARRATIVE: CASE EVENT DATE: 2019
